FAERS Safety Report 10412280 (Version 1)
Quarter: 2014Q2

REPORT INFORMATION
  Report Type: Spontaneous
  Country: US (occurrence: None)
  Receive Date: 20140604
  Receipt Date: 20140604
  Transmission Date: 20141212
  Serious: Yes (Hospitalization)
  Sender: FDA-Public Use
  Company Number: 20100811CINRY1581

PATIENT
  Age: 29 Year
  Sex: Female
  Weight: 119 kg

DRUGS (3)
  1. CINRYZE (C1 ESTERASE INHIBITOR (HUMAN)) (500 UNIT, INJECTION FOR INFUSION) (C1 ESTERASE INHIBITOR (HUMAN)) [Suspect]
     Indication: HEREDITARY ANGIOEDEMA
     Dosage: 1000 UNIT, 1 IN 96 HR
     Route: 042
  2. CINRYZE (C1 ESTERASE INHIBITOR (HUMAN)) (500 UNIT, INJECTION FOR INFUSION) (C1 ESTERASE INHIBITOR (HUMAN)) [Suspect]
     Indication: PROPHYLAXIS
     Dosage: 1000 UNIT, 1 IN 96 HR
     Route: 042
  3. STANOZOLOL (STANOZOLOL) [Concomitant]

REACTIONS (3)
  - Incorrect drug administration duration [None]
  - Incorrect drug administration duration [None]
  - Hereditary angioedema [None]
